FAERS Safety Report 9305168 (Version 1)
Quarter: 2013Q2

REPORT INFORMATION
  Report Type: Spontaneous
  Country: BR (occurrence: BR)
  Receive Date: 20130523
  Receipt Date: 20130523
  Transmission Date: 20140414
  Serious: Yes (Life-Threatening, Other)
  Sender: FDA-Public Use
  Company Number: PHHY2013BR051401

PATIENT
  Sex: Male

DRUGS (1)
  1. FORASEQ [Suspect]
     Dosage: 1 DF, BID

REACTIONS (4)
  - Lung infection [Unknown]
  - Bronchial disorder [Unknown]
  - Fibrosis [Unknown]
  - Fatigue [Unknown]
